FAERS Safety Report 17347683 (Version 1)
Quarter: 2020Q1

REPORT INFORMATION
  Report Type: Spontaneous
  Country: US (occurrence: US)
  Receive Date: 20200129
  Receipt Date: 20200129
  Transmission Date: 20200409
  Serious: Yes (Hospitalization)
  Sender: FDA-Public Use
  Company Number: None

PATIENT
  Sex: Female

DRUGS (8)
  1. METAXALONE. [Concomitant]
     Active Substance: METAXALONE
  2. HYDROCORTISONE. [Concomitant]
     Active Substance: HYDROCORTISONE
  3. MOXIFLOXACIN. [Concomitant]
     Active Substance: MOXIFLOXACIN
  4. TRAMADOL. [Concomitant]
     Active Substance: TRAMADOL
  5. TERBINAFINE. [Concomitant]
     Active Substance: TERBINAFINE
  6. BROMSITE [Concomitant]
     Active Substance: BROMFENAC SODIUM
  7. PREDNISOLONE. [Concomitant]
     Active Substance: PREDNISOLONE
  8. ENBREL [Suspect]
     Active Substance: ETANERCEPT
     Indication: THYROID DISORDER
     Dosage: ?          OTHER FREQUENCY:EVERY WEEK;?
     Route: 058
     Dates: start: 20180227

REACTIONS (1)
  - Therapy cessation [None]
